FAERS Safety Report 6370103-3 (Version None)
Quarter: 2009Q3

REPORT INFORMATION
  Report Type: 
  Country: None (occurrence: None)
  Receive Date: 20090923
  Receipt Date: 20070601
  Transmission Date: 20100115
  Serious: No
  Sender: FDA-Public Use
  Company Number: US-ASTRAZENECA-2006UW22263

PATIENT
  Age: 39 Year
  Sex: Female
  Weight: 68 kg

DRUGS (21)
  1. SEROQUEL [Suspect]
     Indication: SLEEP DISORDER
     Dosage: 12.5 - 400 MG
     Route: 048
     Dates: start: 20021017
  2. SEROQUEL [Suspect]
     Indication: PSYCHOTIC DISORDER
     Dosage: 12.5 - 400 MG
     Route: 048
     Dates: start: 20021017
  3. SEROQUEL [Suspect]
     Route: 048
     Dates: start: 20021209, end: 20030401
  4. SEROQUEL [Suspect]
     Route: 048
     Dates: start: 20021209, end: 20030401
  5. NEURONTIN [Concomitant]
     Indication: MOOD SWINGS
     Route: 048
  6. STRATTERA [Concomitant]
     Indication: ATTENTION DEFICIT/HYPERACTIVITY DISORDER
     Route: 048
  7. TOPAMAX [Concomitant]
     Indication: MOOD SWINGS
     Dosage: 50 - 100 MG
     Route: 048
  8. WELLBUTRIN SR [Concomitant]
     Indication: DEPRESSION
     Dosage: 150 - 300 MG
     Route: 048
  9. CELEXA [Concomitant]
     Indication: DEPRESSION
     Dosage: 20 - 40 MG
     Route: 048
  10. CONCERTA [Concomitant]
     Indication: ATTENTION DEFICIT/HYPERACTIVITY DISORDER
     Route: 048
  11. SARAFEM [Concomitant]
     Indication: PREMENSTRUAL SYNDROME
     Route: 048
  12. XANAX [Concomitant]
     Indication: ANXIETY
     Route: 048
  13. NEXIUM [Concomitant]
     Route: 048
  14. VIOXX [Concomitant]
     Indication: ARTHRALGIA
     Route: 048
  15. DETROL LA [Concomitant]
     Route: 048
  16. AMBIEN [Concomitant]
     Route: 048
  17. METOCLOPRAMIDE [Concomitant]
     Route: 048
  18. SPIRONOLACTONE [Concomitant]
     Route: 048
  19. SONATA [Concomitant]
     Route: 048
  20. PROTONIX [Concomitant]
     Route: 048
  21. METFORMIN HCL [Concomitant]
     Route: 048

REACTIONS (7)
  - ANXIETY DISORDER [None]
  - DIABETES MELLITUS [None]
  - DRUG ABUSE [None]
  - MENORRHAGIA [None]
  - PREMENSTRUAL SYNDROME [None]
  - STRESS URINARY INCONTINENCE [None]
  - VAGINITIS BACTERIAL [None]
